FAERS Safety Report 17849596 (Version 5)
Quarter: 2020Q3

REPORT INFORMATION
  Report Type: Report from Study
  Country: US (occurrence: US)
  Receive Date: 20200602
  Receipt Date: 20200903
  Transmission Date: 20201103
  Serious: Yes (Other)
  Sender: FDA-Public Use
  Company Number: NVSC2020US152216

PATIENT
  Age: 48 Year
  Sex: Female

DRUGS (1)
  1. GILENYA [Suspect]
     Active Substance: FINGOLIMOD HYDROCHLORIDE
     Indication: MULTIPLE SCLEROSIS
     Dosage: 0.5 MG, QD
     Route: 048
     Dates: start: 20200530, end: 20200728

REACTIONS (6)
  - Heart rate decreased [Unknown]
  - Nausea [Unknown]
  - Asthenia [Unknown]
  - Palpitations [Recovered/Resolved]
  - Dehydration [Unknown]
  - Arrhythmia [Unknown]

NARRATIVE: CASE EVENT DATE: 20200530
